FAERS Safety Report 5406257-2 (Version None)
Quarter: 2007Q3

REPORT INFORMATION
  Report Type: 
  Country: None (occurrence: None)
  Receive Date: 20070806
  Receipt Date: 20070730
  Transmission Date: 20080115
  Serious: Yes (Hospitalization, Other)
  Sender: FDA-Public Use
  Company Number: HQWYE924121APR06

PATIENT
  Sex: Male
  Weight: 70.8 kg

DRUGS (26)
  1. TEMSIROLIMUS [Suspect]
     Indication: MANTLE CELL LYMPHOMA
     Route: 065
     Dates: start: 20060215, end: 20060215
  2. TEMSIROLIMUS [Suspect]
     Route: 065
     Dates: start: 20060315, end: 20060315
  3. TEMSIROLIMUS [Suspect]
     Route: 065
     Dates: start: 20060331, end: 20060331
  4. TEMSIROLIMUS [Suspect]
     Dates: start: 20060407, end: 20060407
  5. HYDROCHLOROTHIAZIDE [Concomitant]
     Indication: OEDEMA PERIPHERAL
     Route: 048
     Dates: start: 20060215, end: 20060418
  6. EUCERIN CREME [Concomitant]
     Indication: DRY SKIN
     Dosage: AS NEEDED
     Route: 061
     Dates: start: 20060216
  7. IBUPROFEN [Concomitant]
     Indication: CHILLS
     Dosage: 2 TABS AS NEEDED
     Route: 048
     Dates: start: 20060218
  8. IBUPROFEN [Concomitant]
     Indication: PAIN IN EXTREMITY
  9. VICODIN [Concomitant]
     Indication: HEADACHE
     Dosage: 1 TAB AS NEEDED
     Route: 048
     Dates: start: 20060331
  10. TYLENOL (CAPLET) [Concomitant]
     Indication: PAIN
     Dosage: 1 TAB AS NEEDED
     Route: 048
     Dates: start: 20060309
  11. LASIX [Concomitant]
     Route: 048
  12. AVANDIA [Concomitant]
     Route: 048
  13. BENADRYL [Concomitant]
     Dosage: AS NEEDED
     Route: 065
     Dates: start: 20050501
  14. ATENOLOL [Concomitant]
     Route: 048
     Dates: start: 20020801
  15. LIPITOR [Concomitant]
     Route: 048
     Dates: start: 20060310
  16. HALCION [Concomitant]
     Indication: INSOMNIA
     Dosage: 0.25 MG AS NEEDED AT HOURS OF SLEEP
     Route: 048
  17. OCUVITE [Concomitant]
     Dosage: NOT PROVIDED
     Route: 065
  18. OXYGEN [Concomitant]
     Dosage: 2-3 L AS NEEDED
     Route: 045
  19. PROCRIT [Concomitant]
     Dosage: 40000 UNIT EVERY 1 WK
     Route: 058
     Dates: start: 20060315
  20. ASPIRIN [Concomitant]
     Route: 048
     Dates: start: 20060313
  21. SYSTANE [Concomitant]
     Indication: EYE PAIN
     Route: 001
     Dates: start: 20060331
  22. ROSIGLITAZONE [Concomitant]
     Indication: DIABETES MELLITUS
     Route: 048
     Dates: start: 20060310, end: 20060429
  23. CENTRUM SILVER [Concomitant]
     Route: 048
     Dates: start: 20050101
  24. NAPROXEN [Concomitant]
     Dosage: 2 TABS AS NEEDED
     Route: 048
     Dates: start: 20060109
  25. LOPERAMIDE HCL [Concomitant]
     Indication: DIARRHOEA
     Dosage: 1 TAB AS NEEDED
     Route: 048
     Dates: start: 20050501
  26. MEGESTROL ACETATE [Concomitant]
     Indication: ANOREXIA
     Route: 048
     Dates: start: 20060401, end: 20060407

REACTIONS (2)
  - DYSPNOEA [None]
  - RENAL FAILURE ACUTE [None]
